FAERS Safety Report 14151007 (Version 1)
Quarter: 2017Q4

REPORT INFORMATION
  Report Type: Report from Study
  Country: DE (occurrence: DE)
  Receive Date: 20171102
  Receipt Date: 20171102
  Transmission Date: 20180321
  Serious: Yes (Death)
  Sender: FDA-Public Use
  Company Number: DE-ROCHE-2018641

PATIENT

DRUGS (6)
  1. HEPARIN [Suspect]
     Active Substance: HEPARIN SODIUM
     Indication: ACUTE MYOCARDIAL INFARCTION
     Route: 042
  2. ALTEPLASE. [Suspect]
     Active Substance: ALTEPLASE
     Dosage: KG OVER 60 MINUTES (MAXIMUM: 35 MG)
     Route: 042
  3. ALTEPLASE. [Suspect]
     Active Substance: ALTEPLASE
     Indication: ACUTE MYOCARDIAL INFARCTION
     Dosage: BOLUS
     Route: 042
  4. ALTEPLASE. [Suspect]
     Active Substance: ALTEPLASE
     Dosage: OVER 30 MINUTES (MAXIMUM: 50 MG)
     Route: 042
  5. HEPARIN [Suspect]
     Active Substance: HEPARIN SODIUM
     Dosage: BY 1000 IU/H TO BE GIVEN FOR }= 24 HOURS
     Route: 042
  6. ASPIRIN. [Suspect]
     Active Substance: ASPIRIN
     Indication: ACUTE MYOCARDIAL INFARCTION
     Route: 065

REACTIONS (1)
  - Haemorrhage intracranial [Fatal]
